FAERS Safety Report 5337702-9 (Version None)
Quarter: 2007Q2

REPORT INFORMATION
  Report Type: 
  Country: None (occurrence: None)
  Receive Date: 20070315
  Receipt Date: 20060307
  Transmission Date: 20071010
  Serious: Yes (Hospitalization)
  Sender: FDA-Public Use
  Company Number: PHEH2005US13050

PATIENT
  Age: 29 Year
  Sex: Male
  Weight: 93 kg

DRUGS (6)
  1. TRILEPTAL [Suspect]
     Indication: CONVULSION
     Dosage: 1200 MG, BID, ORAL
     Route: 048
     Dates: start: 20050629, end: 20051010
  2. CLOZAPINE [Suspect]
     Dosage: 300 MG, QHS, ORAL
     Route: 048
     Dates: start: 20050629, end: 20051010
  3. ABILIFY [Concomitant]
  4. LITHIUM CARBONATE [Concomitant]
  5. KLONOPIN [Concomitant]
  6. FOLIC ACID [Concomitant]

REACTIONS (2)
  - CONVULSION [None]
  - ELECTROENCEPHALOGRAM ABNORMAL [None]
